FAERS Safety Report 9185844 (Version 2)
Quarter: 2013Q2

REPORT INFORMATION
  Report Type: Spontaneous
  Country: US (occurrence: None)
  Receive Date: 20130131
  Receipt Date: 20130402
  Transmission Date: 20140414
  Serious: Yes (Death)
  Sender: FDA-Public Use
  Company Number: 2012-1117

PATIENT
  Age: 82 Year
  Sex: Female

DRUGS (2)
  1. KYPROLIS [Suspect]
     Indication: PLASMA CELL MYELOMA
     Dates: start: 201209, end: 20121207
  2. DEXAMETHASONE (DEXAMETHASONE) (DEXAMETHASONE) [Concomitant]

REACTIONS (15)
  - Local swelling [None]
  - Toothache [None]
  - Erythema [None]
  - Epistaxis [None]
  - Pain in extremity [None]
  - Gait disturbance [None]
  - Fatigue [None]
  - Depression [None]
  - Decreased appetite [None]
  - Myalgia [None]
  - Fall [None]
  - Hip fracture [None]
  - Diverticulitis [None]
  - Cardiac failure congestive [None]
  - Respiratory distress [None]
